FAERS Safety Report 8242586-5 (Version None)
Quarter: 2012Q1

REPORT INFORMATION
  Report Type: 
  Country: None (occurrence: None)
  Receive Date: 20120329
  Receipt Date: 20120323
  Transmission Date: 20120608
  Serious: Yes (Hospitalization, Other)
  Sender: FDA-Public Use
  Company Number: PHHY2011JP40943

PATIENT
  Sex: Male

DRUGS (12)
  1. PAXIL [Concomitant]
     Indication: METASTATIC RENAL CELL CARCINOMA
     Dosage: 40 MG, UNK
     Route: 048
     Dates: start: 20091228
  2. RABEPRAZOLE SODIUM [Concomitant]
     Indication: METASTATIC RENAL CELL CARCINOMA
     Dosage: 20 MG, UNK
     Route: 048
     Dates: start: 20100623
  3. CORTRIL [Concomitant]
     Indication: METASTATIC RENAL CELL CARCINOMA
     Dosage: 50 MG, UNK
     Route: 048
     Dates: start: 20080527
  4. ETODOLAC [Concomitant]
     Indication: METASTATIC RENAL CELL CARCINOMA
     Dosage: 400 MG, UNK
     Route: 048
     Dates: start: 20100419
  5. OXINORM [Concomitant]
     Indication: METASTATIC RENAL CELL CARCINOMA
     Dosage: 5 MG, UNK
     Route: 048
     Dates: start: 20070626
  6. DESYREL [Concomitant]
     Indication: METASTATIC RENAL CELL CARCINOMA
     Dosage: 25 MG, UNK
     Route: 048
     Dates: start: 20100127
  7. LASIX [Concomitant]
     Indication: METASTATIC RENAL CELL CARCINOMA
     Dosage: 20 MG, UNK
     Route: 048
     Dates: start: 20101007, end: 20101111
  8. OXYCONTIN [Concomitant]
     Indication: METASTATIC RENAL CELL CARCINOMA
     Dosage: 80 MG, UNK
     Route: 048
     Dates: start: 20070524
  9. ALENDRONATE SODIUM [Concomitant]
     Indication: METASTATIC RENAL CELL CARCINOMA
     Dosage: 35 MG, UNK
     Route: 048
     Dates: start: 20071119
  10. CLONAZEPAM [Concomitant]
     Indication: METASTATIC RENAL CELL CARCINOMA
     Dosage: 1 MG, UNK
     Route: 048
     Dates: start: 20091214
  11. AFINITOR [Suspect]
     Indication: METASTATIC RENAL CELL CARCINOMA
     Dosage: 10 MG, DAILY
     Route: 048
     Dates: start: 20101029, end: 20101105
  12. CANDESARTAN CILEXETIL [Concomitant]
     Indication: METASTATIC RENAL CELL CARCINOMA
     Dosage: 8 MG, UNK
     Route: 048
     Dates: start: 20100613

REACTIONS (6)
  - HEPATIC FUNCTION ABNORMAL [None]
  - RENAL FAILURE [None]
  - HAEMOGLOBIN DECREASED [None]
  - SEPSIS [None]
  - PYREXIA [None]
  - BLOOD PRESSURE DECREASED [None]
